FAERS Safety Report 7395128-0 (Version None)
Quarter: 2011Q2

REPORT INFORMATION
  Report Type: 
  Country: None (occurrence: None)
  Receive Date: 20110405
  Receipt Date: 20110322
  Transmission Date: 20111010
  Serious: Yes (Hospitalization)
  Sender: FDA-Public Use
  Company Number: PHHY2011NL01893

PATIENT
  Sex: Male

DRUGS (5)
  1. ZOMETA [Suspect]
     Indication: BREAST CANCER METASTATIC
     Dosage: 4 MG/ 5 ML
     Route: 042
     Dates: start: 20080211
  2. ZOMETA [Suspect]
     Dosage: 4 MG/5 ML, CONCENTRATE FOR SOLUTION FOR IV INFUSION, 1X PER 42 DAYS,
     Dates: start: 20101129
  3. ZOMETA [Suspect]
     Dosage: 4 MG/5 ML, CONCENTRATE FOR SOLUTION FOR IV INFUSION, 1X PER 42 DAYS,
     Dates: start: 20101021
  4. ZOMETA [Suspect]
     Dosage: 4 MG/5 ML, CONCENTRATE FOR SOLUTION FOR IV INFUSION, 1X PER 42 DAYS,
     Dates: start: 20110121
  5. SODIUM CHLORIDE [Concomitant]
     Dosage: 100ML BAG

REACTIONS (4)
  - FLUID RETENTION [None]
  - CARDIAC FAILURE [None]
  - CHEST DISCOMFORT [None]
  - BLOOD GLUCOSE INCREASED [None]
